FAERS Safety Report 8970796 (Version 3)
Quarter: 2013Q2

REPORT INFORMATION
  Report Type: Spontaneous
  Country: US (occurrence: US)
  Receive Date: 20121218
  Receipt Date: 20130411
  Transmission Date: 20140414
  Serious: Yes (Hospitalization, Other)
  Sender: FDA-Public Use
  Company Number: US-ELI_LILLY_AND_COMPANY-US201212003629

PATIENT
  Age: 74 Year
  Sex: Female
  Weight: 90.25 kg

DRUGS (6)
  1. HUMULIN 30% REGULAR, 70% NPH [Suspect]
     Indication: DIABETES MELLITUS
     Dosage: 26 U, BID
  2. LISINOPRIL [Concomitant]
     Dosage: 20 DF, QD
  3. METOPROLOL [Concomitant]
     Dosage: 50 DF, BID
  4. PRAVACHOL [Concomitant]
     Dosage: 40 DF, QD
  5. TRAMADOL [Concomitant]
     Dosage: 50 DF, PRN
  6. ASA [Concomitant]
     Dosage: 81 DF, QD

REACTIONS (5)
  - Device related infection [Recovered/Resolved]
  - Infection susceptibility increased [Unknown]
  - Arthralgia [Unknown]
  - Incorrect dose administered [Recovered/Resolved]
  - Glycosylated haemoglobin increased [Unknown]
